FAERS Safety Report 15435701 (Version 1)
Quarter: 2018Q3

REPORT INFORMATION
  Report Type: Report from Study
  Country: US (occurrence: US)
  Receive Date: 20180927
  Receipt Date: 20180927
  Transmission Date: 20181010
  Serious: Yes (Hospitalization)
  Sender: FDA-Public Use
  Company Number: US-SA-2018SA264085

PATIENT
  Age: 58 Year
  Sex: Male

DRUGS (1)
  1. INSULIN GLARGINE [Suspect]
     Active Substance: INSULIN GLARGINE
     Indication: DIABETES MELLITUS
     Dosage: 25 U, HS
     Route: 058

REACTIONS (4)
  - Blood glucose increased [Unknown]
  - Blood glucose decreased [Unknown]
  - Ketoacidosis [Unknown]
  - Blood ketone body [Unknown]

NARRATIVE: CASE EVENT DATE: 20180918
